FAERS Safety Report 9097414 (Version 1)
Quarter: 2013Q1

REPORT INFORMATION
  Report Type: Spontaneous
  Country: US (occurrence: US)
  Receive Date: 20130212
  Receipt Date: 20130212
  Transmission Date: 20140127
  Serious: Yes (Other)
  Sender: FDA-Public Use
  Company Number: US-ELI_LILLY_AND_COMPANY-US201302000981

PATIENT
  Sex: Female

DRUGS (3)
  1. GLUCAGON [Suspect]
     Indication: HYPOGLYCAEMIA
     Dosage: UNK UNK, SINGLE
     Dates: start: 1987, end: 1987
  2. HUMALOG LISPRO [Suspect]
     Indication: TYPE 1 DIABETES MELLITUS
     Dosage: UNK, PRN
     Dates: start: 1996
  3. HUMULIN NPH [Suspect]
     Indication: TYPE 1 DIABETES MELLITUS
     Dosage: 25 U, QD
     Dates: start: 1996

REACTIONS (9)
  - Blood glucose increased [Unknown]
  - Hypersensitivity [Recovered/Resolved]
  - Blood glucose increased [Unknown]
  - Feeling abnormal [Unknown]
  - Stress [Unknown]
  - Asthenia [Unknown]
  - Tremor [Unknown]
  - Blood glucose decreased [Unknown]
  - Expired drug administered [Unknown]
